FAERS Safety Report 5534609-9 (Version None)
Quarter: 2007Q4

REPORT INFORMATION
  Report Type: 
  Country: None (occurrence: None)
  Receive Date: 20071204
  Receipt Date: 20071204
  Transmission Date: 20080405
  Serious: Yes (Hospitalization)
  Sender: FDA-Public Use
  Company Number: None

PATIENT
  Sex: Male
  Weight: 70.3075 kg

DRUGS (2)
  1. CHANTIX [Suspect]
     Indication: CHRONIC OBSTRUCTIVE PULMONARY DISEASE
     Dosage: 0.5MG QDAY PO
     Route: 048
     Dates: start: 20071108, end: 20071108
  2. SOLU-MEDROL [Suspect]
     Indication: SMOKING CESSATION THERAPY
     Dosage: 40MG EVERY 8 HOURS IV
     Route: 042
     Dates: start: 20071108, end: 20071109

REACTIONS (2)
  - INSOMNIA [None]
  - PSYCHOTIC DISORDER [None]
